FAERS Safety Report 5946871-9 (Version None)
Quarter: 2008Q4

REPORT INFORMATION
  Report Type: 
  Country: None (occurrence: None)
  Receive Date: 20081107
  Receipt Date: 20081107
  Transmission Date: 20090506
  Serious: No
  Sender: FDA-Public Use
  Company Number: None

PATIENT
  Age: 63 Year
  Sex: Female
  Weight: 79.8331 kg

DRUGS (1)
  1. BONIVA [Suspect]
     Indication: OSTEOPOROSIS
     Dosage: MONTHLY PO
     Route: 048
     Dates: start: 20080804, end: 20081004

REACTIONS (6)
  - FATIGUE [None]
  - GAIT DISTURBANCE [None]
  - HEADACHE [None]
  - INTRAOCULAR PRESSURE INCREASED [None]
  - PAIN IN EXTREMITY [None]
  - TENDONITIS [None]
